FAERS Safety Report 14162604 (Version 1)
Quarter: 2017Q4

REPORT INFORMATION
  Report Type: Spontaneous
  Country: US (occurrence: US)
  Receive Date: 20171106
  Receipt Date: 20171106
  Transmission Date: 20180321
  Serious: No
  Sender: FDA-Public Use
  Company Number: US-B.I. PHARMACEUTICALS,INC./RIDGEFIELD-2017-BI-058944

PATIENT
  Age: 84 Year
  Sex: Female

DRUGS (10)
  1. CARDIZEM CD [Concomitant]
     Active Substance: DILTIAZEM HYDROCHLORIDE
     Indication: HYPERTENSION
     Dosage: ONE CAPSULE DAILY;  FORM STRENGTH: 120 MG; FORMULATION: CAPSULE
     Route: 048
     Dates: start: 1977
  2. BABY ASPIRIN [Concomitant]
     Active Substance: ASPIRIN
     Indication: PRODUCT USED FOR UNKNOWN INDICATION
     Dosage: ONE CAPLET DAILY;  FORM STRENGTH: 81MG; FORMULATION: CAPLET
     Route: 048
  3. PRAVACHOL [Concomitant]
     Active Substance: PRAVASTATIN SODIUM
     Indication: BLOOD CHOLESTEROL INCREASED
     Dosage: ONE CAPLET DAILY;  FORM STRENGTH: 60MG; FORMULATION: CAPLET
     Route: 048
  4. OFEV [Suspect]
     Active Substance: NINTEDANIB
     Indication: IDIOPATHIC PULMONARY FIBROSIS
     Dosage: ONE CAPULE BID;  FORM STRENGTH: 150 MG; FORMULATION: CAPSULE? ADMINISTRATION CORRECT? YES ?ACTION(S)
     Route: 048
     Dates: start: 201611
  5. TROSPIUM CHLORIDE. [Concomitant]
     Active Substance: TROSPIUM CHLORIDE
     Indication: HYPERTONIC BLADDER
     Dosage: ONE CAPLET DAILY;  FORM STRENGTH: 60MG; FORMULATION: CAPLET
     Route: 048
  6. HALIBORANGE KIDS MULTIVITAMINS CALCIUM + IRON [Concomitant]
     Indication: SUPPLEMENTATION THERAPY
  7. IMDUR [Concomitant]
     Active Substance: ISOSORBIDE MONONITRATE
     Indication: HYPERTENSION
     Dosage: ONE CAPLET DAILY;  FORM STRENGTH: 30MG; FORMULATION: CAPLET
     Route: 048
  8. PROZAC [Concomitant]
     Active Substance: FLUOXETINE HYDROCHLORIDE
     Indication: DEPRESSION
     Dosage: ONE CAPSULE DAILY;  FORM STRENGTH: 20MG; FORMULATION: CAPSULE
     Route: 048
  9. MAXZIDE [Concomitant]
     Active Substance: HYDROCHLOROTHIAZIDE\TRIAMTERENE
     Indication: FLUID RETENTION
     Dosage: ONE CAPLET DAILY;  FORM STRENGTH: 37.5/25MG; FORMULATION: CAPLET
     Route: 048
     Dates: start: 1977
  10. PRILOSEC [Concomitant]
     Active Substance: OMEPRAZOLE MAGNESIUM
     Indication: GASTROOESOPHAGEAL REFLUX DISEASE
     Dosage: ONE CAPSULE DAILY;  FORM STRENGTH: 20MG; FORMULATION: CAPSULE
     Route: 048

REACTIONS (3)
  - Rectocele [Unknown]
  - Constipation [Unknown]
  - Diarrhoea [Unknown]

NARRATIVE: CASE EVENT DATE: 201709
